FAERS Safety Report 24312151 (Version 3)
Quarter: 2025Q4

REPORT INFORMATION
  Report Type: Spontaneous
  Country: US (occurrence: US)
  Receive Date: 20240912
  Receipt Date: 20251008
  Transmission Date: 20260118
  Serious: Yes (Hospitalization, Other)
  Sender: CSL BEHRING
  Company Number: US-BEH-2024178327

PATIENT
  Age: 72 Year
  Sex: Female

DRUGS (6)
  1. HIZENTRA [Suspect]
     Active Substance: HUMAN IMMUNOGLOBULIN G
     Indication: Combined immunodeficiency
     Dosage: 3 G, QW
     Route: 065
     Dates: start: 202308
  2. HIZENTRA [Suspect]
     Active Substance: HUMAN IMMUNOGLOBULIN G
     Dosage: 12 G, QW
     Route: 065
     Dates: start: 202309
  3. HIZENTRA [Suspect]
     Active Substance: HUMAN IMMUNOGLOBULIN G
     Dosage: 15 G, QW
     Route: 058
     Dates: start: 202309
  4. HIZENTRA [Suspect]
     Active Substance: HUMAN IMMUNOGLOBULIN G
     Dosage: 15 G, QW
     Route: 058
     Dates: start: 202309
  5. HIZENTRA [Suspect]
     Active Substance: HUMAN IMMUNOGLOBULIN G
     Dosage: 3 G, QW
     Route: 058
     Dates: start: 202309
  6. HIZENTRA [Suspect]
     Active Substance: HUMAN IMMUNOGLOBULIN G
     Dosage: 12 G, QW
     Route: 058
     Dates: start: 202309

REACTIONS (8)
  - Asthma [Unknown]
  - Chronic obstructive pulmonary disease [Unknown]
  - COVID-19 [Unknown]
  - Dyspnoea [Recovering/Resolving]
  - Pneumonia [Unknown]
  - Pneumonia [Unknown]
  - Decreased appetite [Unknown]
  - Dyspnoea [Unknown]

NARRATIVE: CASE EVENT DATE: 20240825
